FAERS Safety Report 5429537-3 (Version None)
Quarter: 2007Q3

REPORT INFORMATION
  Report Type: 
  Country: None (occurrence: None)
  Receive Date: 20070829
  Receipt Date: 20070326
  Transmission Date: 20080115
  Serious: No
  Sender: FDA-Public Use
  Company Number: A0644665A

PATIENT
  Sex: Male

DRUGS (2)
  1. BECONASE [Suspect]
     Dosage: 2SPR TWICE PER DAY
     Route: 045
     Dates: start: 20040101
  2. NO CONCURRENT MEDICATION [Concomitant]

REACTIONS (1)
  - DRUG INEFFECTIVE [None]
